FAERS Safety Report 9067687 (Version 2)
Quarter: 2013Q2

REPORT INFORMATION
  Report Type: Spontaneous
  Country: IT (occurrence: IT)
  Receive Date: 20130128
  Receipt Date: 20130529
  Transmission Date: 20140414
  Serious: Yes (Hospitalization)
  Sender: FDA-Public Use
  Company Number: IT-BRISTOL-MYERS SQUIBB COMPANY-17316654

PATIENT
  Age: 79 Year
  Sex: Male

DRUGS (3)
  1. ERBITUX SOLN FOR INF [Suspect]
     Indication: COLON CANCER
     Route: 042
     Dates: start: 20121019
  2. FLUOROURACIL [Suspect]
     Indication: COLON CANCER
     Route: 042
     Dates: start: 20121019
  3. IRINOTECAN [Suspect]
     Indication: COLON CANCER
     Route: 042
     Dates: start: 20121019

REACTIONS (2)
  - Pancytopenia [Recovered/Resolved]
  - Neutropenia [Recovered/Resolved]
